FAERS Safety Report 25519368 (Version 1)
Quarter: 2025Q3

REPORT INFORMATION
  Report Type: Spontaneous
  Country: ID (occurrence: ID)
  Receive Date: 20250704
  Receipt Date: 20250704
  Transmission Date: 20251021
  Serious: Yes (Other)
  Sender: BOEHRINGER INGELHEIM
  Company Number: ID-BoehringerIngelheim-2025-BI-080741

PATIENT
  Age: 50 Year
  Sex: Female

DRUGS (2)
  1. GILOTRIF [Suspect]
     Active Substance: AFATINIB
     Indication: Product used for unknown indication
     Dates: start: 202504, end: 20250701
  2. GILOTRIF [Suspect]
     Active Substance: AFATINIB

REACTIONS (2)
  - Skin burning sensation [Not Recovered/Not Resolved]
  - Diarrhoea [Recovered/Resolved]

NARRATIVE: CASE EVENT DATE: 20250401
